FAERS Safety Report 23836267 (Version 1)
Quarter: 2024Q2

REPORT INFORMATION
  Report Type: Spontaneous
  Country: US (occurrence: US)
  Receive Date: 20240509
  Receipt Date: 20240509
  Transmission Date: 20240716
  Serious: No
  Sender: FDA-Public Use
  Company Number: US-PFIZER INC-202400103010

PATIENT
  Age: 61 Year
  Sex: Female

DRUGS (2)
  1. GLIPIZIDE [Suspect]
     Active Substance: GLIPIZIDE
     Dosage: UNK, 2X/DAY
  2. GLIPIZIDE [Suspect]
     Active Substance: GLIPIZIDE
     Dosage: UNK, 1X/DAY

REACTIONS (2)
  - Blood glucose decreased [Unknown]
  - Off label use [Unknown]
